FAERS Safety Report 20494700 (Version 1)
Quarter: 2022Q1

REPORT INFORMATION
  Report Type: Other
  Country: GB (occurrence: GB)
  Receive Date: 20220221
  Receipt Date: 20220221
  Transmission Date: 20220424
  Serious: Yes (Other)
  Sender: FDA-Public Use
  Company Number: None

PATIENT
  Sex: Female

DRUGS (10)
  1. HYDROCORTISONE [Suspect]
     Active Substance: HYDROCORTISONE
     Indication: Product used for unknown indication
     Dosage: UNK UNK, BID
     Route: 065
  2. HYDROCORTISONE [Suspect]
     Active Substance: HYDROCORTISONE
     Dosage: UNK, (I WAS TOLD TO UP THE DOSE AND CONTINUE USE IF SKIN FLARES).
     Route: 065
  3. HYDROCORTISONE [Suspect]
     Active Substance: HYDROCORTISONE
     Dosage: UNK, WEANED DOWN
     Route: 065
     Dates: end: 20210612
  4. PREDNISOLONE [Suspect]
     Active Substance: PREDNISOLONE
     Indication: Product used for unknown indication
     Dosage: 30 MILLIGRAM
     Route: 065
     Dates: start: 20201110
  5. BETNOVATE [Suspect]
     Active Substance: BETAMETHASONE
     Indication: Product used for unknown indication
     Dosage: UNK UNK, BID
     Route: 065
  6. BETNOVATE [Suspect]
     Active Substance: BETAMETHASONE
     Dosage: UNK, (I WAS TOLD TO UP THE DOSE AND CONTINUE USE IF SKIN FLARES).
     Route: 065
  7. BETNOVATE [Suspect]
     Active Substance: BETAMETHASONE
     Dosage: UNK, WEANED DOWN
     Route: 065
     Dates: end: 20210612
  8. CLOBETASOL [Suspect]
     Active Substance: CLOBETASOL
     Indication: Product used for unknown indication
     Dosage: UNK,
     Route: 065
     Dates: start: 2018, end: 20210612
  9. PROTOPIC [Suspect]
     Active Substance: TACROLIMUS
     Indication: Product used for unknown indication
     Dosage: UNK,
     Route: 065
  10. HYDROMOL [SODIUM PIDOLATE] [Concomitant]
     Indication: Product used for unknown indication
     Dosage: UNK
     Route: 065

REACTIONS (16)
  - Skin hypertrophy [Recovered/Resolved]
  - Topical steroid withdrawal reaction [Recovered/Resolved]
  - Skin weeping [Recovered/Resolved]
  - Skin exfoliation [Recovered/Resolved]
  - Lymphadenopathy [Recovered/Resolved]
  - Alopecia [Recovered/Resolved]
  - Eye swelling [Recovered/Resolved]
  - Neuralgia [Recovered/Resolved]
  - Formication [Recovered/Resolved]
  - Skin burning sensation [Recovered/Resolved]
  - Rash [Recovered/Resolved]
  - Pain [Recovered/Resolved]
  - Pruritus [Recovered/Resolved]
  - Insomnia [Recovered/Resolved]
  - Drug ineffective [Unknown]
  - Feeling abnormal [Recovered/Resolved]

NARRATIVE: CASE EVENT DATE: 20110101
